FAERS Safety Report 15686849 (Version 3)
Quarter: 2018Q4

REPORT INFORMATION
  Report Type: Report from Study
  Country: FR (occurrence: FR)
  Receive Date: 20181204
  Receipt Date: 20181221
  Transmission Date: 20190205
  Serious: Yes (Other)
  Sender: FDA-Public Use
  Company Number: FR-SEATTLE GENETICS-2018SGN03114

PATIENT
  Age: 75 Year
  Sex: Male
  Weight: 61 kg

DRUGS (1)
  1. BRENTUXIMAB VEDOTIN-MPI [Suspect]
     Active Substance: BRENTUXIMAB VEDOTIN
     Indication: HODGKIN^S DISEASE
     Dosage: 100 MG, UNK
     Route: 065
     Dates: start: 20181022

REACTIONS (2)
  - Lymphopenia [Recovered/Resolved]
  - Sciatica [Recovering/Resolving]

NARRATIVE: CASE EVENT DATE: 20181129
